FAERS Safety Report 8269795-3 (Version None)
Quarter: 2012Q2

REPORT INFORMATION
  Report Type: 
  Country: None (occurrence: None)
  Receive Date: 20120405
  Receipt Date: 20120320
  Transmission Date: 20120825
  Serious: Yes (Other)
  Sender: FDA-Public Use
  Company Number: 1224701-2012-00001

PATIENT

DRUGS (1)
  1. PHOSLYRA, 160Z BOTTLE, LYNE LABORATORIES. [Suspect]
     Indication: HYPERPHOSPHATAEMIA
     Dosage: , PO
     Route: 048
     Dates: start: 20120320

REACTIONS (1)
  - BLOOD POTASSIUM DECREASED [None]
